FAERS Safety Report 12635864 (Version 4)
Quarter: 2016Q4

REPORT INFORMATION
  Report Type: Report from Study
  Country: US (occurrence: US)
  Receive Date: 20160809
  Receipt Date: 20161024
  Transmission Date: 20170207
  Serious: Yes (Hospitalization)
  Sender: FDA-Public Use
  Company Number: US-ACTELION-A-US2016-139175

PATIENT
  Age: 60 Year
  Sex: Female

DRUGS (6)
  1. OPSUMIT [Suspect]
     Active Substance: MACITENTAN
     Indication: PULMONARY ARTERIAL HYPERTENSION
     Dosage: UNK
     Route: 048
     Dates: start: 20150305
  2. UPTRAVI [Suspect]
     Active Substance: SELEXIPAG
     Indication: PULMONARY ARTERIAL HYPERTENSION
     Dosage: UNK
     Route: 048
     Dates: start: 201608
  3. LEVOTHYROXINE. [Concomitant]
     Active Substance: LEVOTHYROXINE
  4. DIGOXIN. [Concomitant]
     Active Substance: DIGOXIN
     Dosage: UNK
     Dates: start: 20150216
  5. FERROUS SULFATE. [Concomitant]
     Active Substance: FERROUS SULFATE
     Dosage: UNK
     Dates: start: 20150514
  6. MULTIVITAMIN [Concomitant]
     Active Substance: VITAMINS

REACTIONS (19)
  - Cardiac failure acute [Not Recovered/Not Resolved]
  - Anaemia [Recovered/Resolved]
  - Haematocrit decreased [Recovered/Resolved]
  - Fluid overload [Not Recovered/Not Resolved]
  - Jugular vein distension [Not Recovered/Not Resolved]
  - Pulmonary hypertension [Unknown]
  - Pain [Not Recovered/Not Resolved]
  - Haemoglobin decreased [Recovered/Resolved]
  - Gastrointestinal haemorrhage [Recovered/Resolved]
  - Melaena [Recovered/Resolved]
  - Gastrointestinal arteriovenous malformation [Recovered/Resolved]
  - Pulmonary arterial hypertension [Unknown]
  - Rectal haemorrhage [Recovered/Resolved]
  - Transfusion [Unknown]
  - Influenza like illness [Not Recovered/Not Resolved]
  - Condition aggravated [Not Recovered/Not Resolved]
  - Dizziness postural [Recovered/Resolved]
  - Flushing [Not Recovered/Not Resolved]
  - Faeces discoloured [Recovered/Resolved]

NARRATIVE: CASE EVENT DATE: 2015
